FAERS Safety Report 4727105-X (Version None)
Quarter: 2005Q3

REPORT INFORMATION
  Report Type: 
  Country: None (occurrence: None)
  Receive Date: 20050726
  Receipt Date: 20050726
  Transmission Date: 20060218
  Serious: Yes (Hospitalization)
  Sender: FDA-Public Use
  Company Number: None

PATIENT
  Age: 71 Year
  Sex: Male
  Weight: 59.9 kg

DRUGS (14)
  1. COMPAZINE [Suspect]
  2. FERROUS GLUCONATE [Concomitant]
  3. LOPERAMIDE HCL [Concomitant]
  4. ACETAMINOPHEN [Concomitant]
  5. MEGESTROL ACETATE [Concomitant]
  6. SIMVASTATIN [Concomitant]
  7. METOPROLOL [Concomitant]
  8. SERTRALINE HCL [Concomitant]
  9. ASPIRIN [Concomitant]
  10. TRAZODONE HCL [Concomitant]
  11. NITROGLYCERIN [Concomitant]
  12. ALBUTEROL 90/IPRATROPIUM [Concomitant]
  13. SELENIUM SHAMPOO [Concomitant]
  14. GATIFLOXACIN [Concomitant]

REACTIONS (2)
  - LIVEDO RETICULARIS [None]
  - RASH [None]
